FAERS Safety Report 7700044-8 (Version None)
Quarter: 2011Q3

REPORT INFORMATION
  Report Type: 
  Country: None (occurrence: None)
  Receive Date: 20110815
  Receipt Date: 20110809
  Transmission Date: 20111222
  Serious: Yes (Hospitalization)
  Sender: FDA-Public Use
  Company Number: CR11-0178

PATIENT
  Age: 81 Year
  Sex: Male

DRUGS (1)
  1. PRIMATENE MIST [Suspect]
     Dates: start: 20110724

REACTIONS (3)
  - DYSPNOEA [None]
  - CONDITION AGGRAVATED [None]
  - OXYGEN SATURATION DECREASED [None]
